FAERS Safety Report 7304709-1 (Version None)
Quarter: 2011Q1

REPORT INFORMATION
  Report Type: 
  Country: None (occurrence: None)
  Receive Date: 20110222
  Receipt Date: 20110218
  Transmission Date: 20110831
  Serious: Yes (Other)
  Sender: FDA-Public Use
  Company Number: US-PFIZER INC-2011036725

PATIENT
  Sex: Male
  Weight: 78 kg

DRUGS (4)
  1. TRAMADOL [Concomitant]
     Indication: ARTHRITIS
     Dosage: 50 MG, 1X/DAY
     Route: 048
  2. CRESTOR [Concomitant]
     Indication: BLOOD CHOLESTEROL ABNORMAL
     Dosage: 10 MG, 1X/DAY
     Route: 048
  3. GLUCOPHAGE [Concomitant]
     Indication: DIABETES MELLITUS
     Dosage: 500 MG, 1X/DAY
     Route: 048
  4. CHANTIX [Suspect]
     Indication: SMOKING CESSATION THERAPY
     Dosage: 0.5 MG, 1X/DAY
     Route: 048
     Dates: start: 20101015, end: 20110201

REACTIONS (3)
  - DEPRESSION [None]
  - DARK CIRCLES UNDER EYES [None]
  - HEMICEPHALALGIA [None]
